FAERS Safety Report 5376460-9 (Version None)
Quarter: 2007Q3

REPORT INFORMATION
  Report Type: 
  Country: None (occurrence: None)
  Receive Date: 20070702
  Receipt Date: 20070626
  Transmission Date: 20080115
  Serious: Yes (Other)
  Sender: FDA-Public Use
  Company Number: US-BOEHRINGER INGELHEIM PHARMACEUTICALS, INC.-2007-BP-16271BP

PATIENT
  Sex: Female

DRUGS (3)
  1. VIRAMUNE [Suspect]
     Indication: HIV INFECTION
     Route: 048
     Dates: start: 20030101
  2. COMBIVIR [Concomitant]
     Indication: HIV INFECTION
  3. PROVENTIL-HFA [Concomitant]
     Indication: ASTHMA

REACTIONS (1)
  - ABORTION SPONTANEOUS [None]
